FAERS Safety Report 8903125 (Version 3)
Quarter: 2012Q4

REPORT INFORMATION
  Report Type: Report from Study
  Country: BE (occurrence: GB)
  Receive Date: 20121112
  Receipt Date: 20121207
  Transmission Date: 20130627
  Serious: Yes (Hospitalization)
  Sender: FDA-Public Use
  Company Number: GB-009507513-1211GBR000016

PATIENT
  Age: 52 Year
  Sex: Male
  Weight: 95.2 kg

DRUGS (10)
  1. TEMOZOLOMIDE [Suspect]
  2. WARFARIN [Concomitant]
     Indication: PULMONARY EMBOLISM
     Dosage: 7 mg, qod
     Route: 048
     Dates: start: 19980708
  3. OMEPRAZOLE [Concomitant]
     Indication: PROPHYLAXIS
     Dosage: 40 mg, qod
     Route: 048
     Dates: start: 20111025
  4. LEVETIRACETAM [Concomitant]
     Indication: GLIOMA
     Dosage: 500mg/250 mg, qd
     Route: 048
     Dates: start: 20120913
  5. DEXAMETHASONE [Concomitant]
     Indication: GLIOMA
     Dosage: 2 mg, qod
     Route: 048
     Dates: start: 20121025
  6. DORZOLAMIDE HYDROCHLORIDE (+) TIMOLOL MALEATE [Concomitant]
     Indication: GLAUCOMA
     Dosage: one drop, bid
     Dates: start: 20080304
  7. ACETAMINOPHEN [Concomitant]
     Indication: PAIN
     Dosage: 1 g, qd
     Route: 048
     Dates: start: 20111025, end: 20111027
  8. ACETAMINOPHEN [Concomitant]
     Dosage: UNK
     Dates: start: 20121101, end: 20121101
  9. HALOPERIDOL [Concomitant]
     Indication: AGITATION
     Dosage: 13 mg, prn
     Route: 042
     Dates: start: 20121028, end: 20121028
  10. PHENYTOIN [Concomitant]
     Dosage: UNK, qod
     Dates: start: 20121027

REACTIONS (5)
  - Brain oedema [Not Recovered/Not Resolved]
  - Convulsion [Recovered/Resolved]
  - Aphasia [Recovered/Resolved]
  - Headache [Recovered/Resolved]
  - Wound infection [Recovered/Resolved]
